FAERS Safety Report 8920795 (Version 1)
Quarter: 2012Q4

REPORT INFORMATION
  Report Type: 
  Country: JP (occurrence: JP)
  Receive Date: 20121121
  Receipt Date: 20121121
  Transmission Date: 20130627
  Serious: Yes (Death, Hospitalization, Other)
  Sender: FDA-Public Use
  Company Number: JP-ASTELLAS-2012US011320

PATIENT
  Age: 81 Year
  Sex: Male

DRUGS (10)
  1. TARCEVA [Suspect]
     Indication: LUNG SQUAMOUS CELL CARCINOMA STAGE UNSPECIFIED
     Dosage: 150 mg, UID/QD
     Route: 048
     Dates: start: 20120914, end: 20120925
  2. GASTER [Concomitant]
     Indication: PRODUCT USED FOR UNKNOWN INDICATION
     Dosage: 20 mg, UID/QD
     Route: 048
     Dates: start: 20120301, end: 20121020
  3. ARTIST [Concomitant]
     Indication: PRODUCT USED FOR UNKNOWN INDICATION
     Dosage: 1.25 mg, bid
     Route: 048
     Dates: start: 20120301, end: 20121020
  4. ADALAT CR [Concomitant]
     Indication: PRODUCT USED FOR UNKNOWN INDICATION
     Dosage: 20 mg, UID/QD
     Route: 048
     Dates: start: 20120301, end: 20121020
  5. ODRIC [Concomitant]
     Indication: PRODUCT USED FOR UNKNOWN INDICATION
     Dosage: 1 mg, UID/QD
     Route: 048
     Dates: start: 20120301, end: 20121020
  6. SEIBULE [Concomitant]
     Indication: PRODUCT USED FOR UNKNOWN INDICATION
     Dosage: 75 mg, UID/QD
     Route: 048
     Dates: start: 20120301, end: 20121020
  7. DIOVAN [Concomitant]
     Indication: PRODUCT USED FOR UNKNOWN INDICATION
     Dosage: 80 mg, bid
     Route: 048
     Dates: start: 20120301, end: 20121020
  8. BAYASPIRIN [Concomitant]
     Indication: PRODUCT USED FOR UNKNOWN INDICATION
     Dosage: 100 mg, UID/QD
     Route: 048
     Dates: start: 20120301, end: 20121020
  9. PURSENNID /00142207/ [Concomitant]
     Indication: PRODUCT USED FOR UNKNOWN INDICATION
     Dosage: 24 mg, UID/QD
     Route: 048
     Dates: start: 20120301, end: 20121020
  10. PLAVIX [Concomitant]
     Indication: PRODUCT USED FOR UNKNOWN INDICATION
     Dosage: 75 mg, UID/QD
     Route: 048
     Dates: start: 20120301, end: 20121020

REACTIONS (7)
  - Haemoglobin decreased [Unknown]
  - Shock [Unknown]
  - Blood pressure decreased [Unknown]
  - Gastrointestinal haemorrhage [Unknown]
  - Gastroduodenal ulcer [Recovering/Resolving]
  - Non-small cell lung cancer [Fatal]
  - Squamous cell carcinoma of lung [Fatal]
